FAERS Safety Report 6146737-8 (Version None)
Quarter: 2009Q2

REPORT INFORMATION
  Report Type: 
  Country: None (occurrence: None)
  Receive Date: 20090407
  Receipt Date: 20090402
  Transmission Date: 20091009
  Serious: Yes (Other)
  Sender: FDA-Public Use
  Company Number: KR-JNJFOC-20090307424

PATIENT
  Age: 8 Year
  Sex: Female

DRUGS (2)
  1. TYLENOL (CAPLET) [Suspect]
     Route: 048
  2. TYLENOL (CAPLET) [Suspect]
     Indication: PYREXIA
     Dosage: 224-256 MG ONCE TOTAL
     Route: 048

REACTIONS (5)
  - APHASIA [None]
  - MYDRIASIS [None]
  - PARALYSIS [None]
  - PRODUCT QUALITY ISSUE [None]
  - RASH [None]
